FAERS Safety Report 8532932 (Version 4)
Quarter: 2012Q4

REPORT INFORMATION
  Report Type: 
  Country: US (occurrence: US)
  Receive Date: 20120427
  Receipt Date: 20121130
  Transmission Date: 20130627
  Serious: Yes (Hospitalization)
  Sender: FDA-Public Use
  Company Number: US-BIOGENIDEC-2012BI013473

PATIENT
  Age: 43 Year
  Sex: Female

DRUGS (1)
  1. AVONEX [Suspect]
     Indication: MULTIPLE SCLEROSIS
     Route: 030
     Dates: start: 20110203, end: 20120219

REACTIONS (3)
  - Multiple sclerosis [Unknown]
  - Intervertebral disc disorder [Recovered/Resolved]
  - Multiple sclerosis relapse [Recovered/Resolved]
